FAERS Safety Report 17412000 (Version 1)
Quarter: 2020Q1

REPORT INFORMATION
  Report Type: Spontaneous
  Country: US (occurrence: US)
  Receive Date: 20200128
  Receipt Date: 20200128
  Transmission Date: 20200409
  Serious: No
  Sender: FDA-Public Use
  Company Number: None

PATIENT
  Age: 79 Year
  Sex: Female
  Weight: 83.01 kg

DRUGS (5)
  1. PRALUENT [Suspect]
     Active Substance: ALIROCUMAB
     Indication: LOW DENSITY LIPOPROTEIN INCREASED
     Dosage: ?          QUANTITY:1 PREFILLED PEN;OTHER FREQUENCY:1 EVERY 14 DAYS;OTHER ROUTE:INJECTION?
     Dates: start: 20190625, end: 201910
  2. OLMESARTAN HCTZ [Concomitant]
     Active Substance: HYDROCHLOROTHIAZIDE\OLMESARTAN MEDOXOMIL
  3. METOPROLOL SUCC ER [Concomitant]
     Active Substance: METOPROLOL SUCCINATE
  4. PLAVIX [Concomitant]
     Active Substance: CLOPIDOGREL BISULFATE
  5. CENTRUM SILVER MULTIVITAMIN/MULTIMINERAL [Concomitant]

REACTIONS (5)
  - Rash [None]
  - Skin discolouration [None]
  - Dry skin [None]
  - Pruritus [None]
  - Skin exfoliation [None]

NARRATIVE: CASE EVENT DATE: 201907
